FAERS Safety Report 9005016 (Version 1)
Quarter: 2013Q1

REPORT INFORMATION
  Report Type: Spontaneous
  Country: FR (occurrence: FR)
  Receive Date: 20130109
  Receipt Date: 20130109
  Transmission Date: 20140127
  Serious: Yes (Death)
  Sender: FDA-Public Use
  Company Number: FR-SANOFI-AVENTIS-2013SA000773

PATIENT
  Age: 86 Year
  Sex: Female

DRUGS (12)
  1. LASILIX [Suspect]
     Indication: PRODUCT USED FOR UNKNOWN INDICATION
     Dosage: 40 MG SCORED TABLET
     Route: 048
  2. ALDACTONE [Suspect]
     Indication: PRODUCT USED FOR UNKNOWN INDICATION
     Dosage: STRENGTH: 25 MG
     Route: 048
  3. HEMIGOXINE NATIVELLE [Concomitant]
  4. KALEORID [Concomitant]
  5. TRANSIPEG /FRA/ [Concomitant]
  6. XANAX [Concomitant]
  7. PREVISCAN [Concomitant]
  8. INEXIUM [Concomitant]
  9. LEVOTHYROX [Concomitant]
     Dosage: LEVOTHYROX 25
  10. LEVOTHYROX [Concomitant]
     Dosage: LEVOTHYROX 50
  11. STABLON [Concomitant]
  12. OROCAL D(3) [Concomitant]

REACTIONS (2)
  - Dehydration [Fatal]
  - Overdose [Fatal]
